FAERS Safety Report 16702406 (Version 1)
Quarter: 2019Q3

REPORT INFORMATION
  Report Type: Spontaneous
  Country: US (occurrence: US)
  Receive Date: 20190813
  Receipt Date: 20190813
  Transmission Date: 20191004
  Serious: Yes (Disabling)
  Sender: FDA-Public Use
  Company Number: None

PATIENT
  Age: 62 Year
  Sex: Female
  Weight: 59.4 kg

DRUGS (1)
  1. PROLIA [Suspect]
     Active Substance: DENOSUMAB
     Indication: BONE DENSITY ABNORMAL
     Dosage: ?          OTHER FREQUENCY:EVERY 6 MONTHS;?
     Route: 058
     Dates: start: 20180202, end: 20190813

REACTIONS (7)
  - Bone pain [None]
  - Pain in extremity [None]
  - Pain in jaw [None]
  - Gait disturbance [None]
  - Facial pain [None]
  - Middle insomnia [None]
  - Arthralgia [None]

NARRATIVE: CASE EVENT DATE: 20190312
